FAERS Safety Report 16335828 (Version 3)
Quarter: 2020Q4

REPORT INFORMATION
  Report Type: Spontaneous
  Country: US (occurrence: US)
  Receive Date: 20190521
  Receipt Date: 20201009
  Transmission Date: 20210113
  Serious: Yes (Other)
  Sender: FDA-Public Use
  Company Number: US-GILEAD-2019-0407990

PATIENT
  Sex: Female
  Weight: 93.42 kg

DRUGS (21)
  1. TRUVADA [Suspect]
     Active Substance: EMTRICITABINE\TENOFOVIR DISOPROXIL FUMARATE
     Indication: HIV INFECTION
     Dosage: UNK
     Route: 048
     Dates: start: 20101203, end: 20160915
  2. LORATINE [Concomitant]
  3. FLUTICASONE. [Concomitant]
     Active Substance: FLUTICASONE
  4. PAXIL [Concomitant]
     Active Substance: PAROXETINE HYDROCHLORIDE
  5. DESCOVY [Concomitant]
     Active Substance: EMTRICITABINE\TENOFOVIR ALAFENAMIDE FUMARATE
  6. TRAMADOL. [Concomitant]
     Active Substance: TRAMADOL
  7. DEXILANT [Concomitant]
     Active Substance: DEXLANSOPRAZOLE
  8. IBUPROFEN. [Concomitant]
     Active Substance: IBUPROFEN
  9. METHYLPREDNISOLONE. [Concomitant]
     Active Substance: METHYLPREDNISOLONE
  10. FOSAMAX [Concomitant]
     Active Substance: ALENDRONATE SODIUM
  11. NORVIR [Concomitant]
     Active Substance: RITONAVIR
  12. TIVICAY [Concomitant]
     Active Substance: DOLUTEGRAVIR SODIUM
  13. HYDROCODONE/ACETAMINOPHEN [Concomitant]
     Active Substance: ACETAMINOPHEN\HYDROCODONE
  14. NASONEX [Concomitant]
     Active Substance: MOMETASONE FUROATE
  15. OSCAL D [Concomitant]
     Active Substance: CALCIUM CARBONATE\CHOLECALCIFEROL
  16. PREZISTA [Concomitant]
     Active Substance: DARUNAVIR ETHANOLATE
  17. OMEPRAZOLE. [Concomitant]
     Active Substance: OMEPRAZOLE
  18. CALCIUM 600 + D [Concomitant]
     Active Substance: CALCIUM\VITAMIN D
  19. NAPROXEN. [Concomitant]
     Active Substance: NAPROXEN
  20. VERAMYST [Concomitant]
     Active Substance: FLUTICASONE FUROATE
  21. ENOXAPARIN [Concomitant]
     Active Substance: ENOXAPARIN

REACTIONS (14)
  - Emotional distress [Not Recovered/Not Resolved]
  - Sitting disability [Not Recovered/Not Resolved]
  - Bone density decreased [Unknown]
  - Gait disturbance [Not Recovered/Not Resolved]
  - Hip arthroplasty [Unknown]
  - Knee operation [Unknown]
  - Loss of personal independence in daily activities [Unknown]
  - Pain [Not Recovered/Not Resolved]
  - Anxiety [Not Recovered/Not Resolved]
  - Economic problem [Not Recovered/Not Resolved]
  - Anhedonia [Not Recovered/Not Resolved]
  - Osteoporosis [Not Recovered/Not Resolved]
  - Femoral neck fracture [Not Recovered/Not Resolved]
  - Osteopenia [Not Recovered/Not Resolved]

NARRATIVE: CASE EVENT DATE: 20110811
